FAERS Safety Report 13805226 (Version 1)
Quarter: 2017Q3

REPORT INFORMATION
  Report Type: Spontaneous
  Country: US (occurrence: US)
  Receive Date: 20170728
  Receipt Date: 20170728
  Transmission Date: 20171127
  Serious: Yes (Hospitalization, Other)
  Sender: FDA-Public Use
  Company Number: US-APOTEX-2017AP016021

PATIENT
  Age: 76 Year
  Sex: Female

DRUGS (3)
  1. LEVOTHYROXINE. [Concomitant]
     Active Substance: LEVOTHYROXINE
     Indication: PRODUCT USED FOR UNKNOWN INDICATION
     Dosage: 100 ?G, DAILY
     Route: 065
  2. ATORVASTATIN [Concomitant]
     Active Substance: ATORVASTATIN
     Indication: PRODUCT USED FOR UNKNOWN INDICATION
     Dosage: 10 MG, DAILY
     Route: 065
  3. OMEPRAZOLE. [Suspect]
     Active Substance: OMEPRAZOLE
     Indication: PRODUCT USED FOR UNKNOWN INDICATION
     Dosage: 20 MG, DAILY
     Route: 065

REACTIONS (29)
  - Atrial fibrillation [Recovered/Resolved]
  - Nystagmus [Recovered/Resolved]
  - Hyperaesthesia [Recovered/Resolved]
  - Frequent bowel movements [Recovered/Resolved]
  - White blood cell count increased [Unknown]
  - Pain in extremity [Recovered/Resolved]
  - Blood calcium decreased [Recovered/Resolved]
  - Cerebral ischaemia [Unknown]
  - Resting tremor [Recovered/Resolved]
  - Supraventricular extrasystoles [Recovered/Resolved]
  - Blood albumin decreased [Unknown]
  - Mental status changes [Recovered/Resolved]
  - Speech disorder [Recovered/Resolved]
  - Sinus arrhythmia [Recovered/Resolved]
  - Vibration test abnormal [Recovered/Resolved]
  - Skin turgor decreased [Recovered/Resolved]
  - Haemoglobin decreased [Unknown]
  - Diastolic dysfunction [Unknown]
  - Hypokalaemia [Recovered/Resolved]
  - Nausea [Recovered/Resolved]
  - Respiratory distress [Recovered/Resolved]
  - Creatinine renal clearance decreased [Unknown]
  - Dry mouth [Recovered/Resolved]
  - Diarrhoea [Recovered/Resolved]
  - Dysmetria [Recovered/Resolved]
  - Hypophagia [Recovered/Resolved]
  - Paraesthesia [Recovered/Resolved]
  - Hypomagnesaemia [Recovered/Resolved]
  - Atrial tachycardia [Recovered/Resolved]
